FAERS Safety Report 7574581-3 (Version None)
Quarter: 2011Q2

REPORT INFORMATION
  Report Type: 
  Country: None (occurrence: None)
  Receive Date: 20110627
  Receipt Date: 20110607
  Transmission Date: 20111010
  Serious: Yes (Hospitalization)
  Sender: FDA-Public Use
  Company Number: US-BAYER-2011-021007

PATIENT
  Age: 79 Year
  Sex: Male

DRUGS (3)
  1. CALCIUM CHANNEL BLOCKERS [Concomitant]
     Indication: PULMONARY ARTERIAL HYPERTENSION
     Dosage: UNK
  2. VENTAVIS [Suspect]
     Indication: PULMONARY ARTERIAL HYPERTENSION
     Dosage: UNK
  3. TRACLEER [Suspect]
     Indication: PULMONARY ARTERIAL HYPERTENSION
     Dosage: FIRST SHIPMENT: 20-MAR-2009, LAST SHIPMENT: 04-MAY-2009

REACTIONS (2)
  - PROSTATIC OPERATION [None]
  - HOSPITALISATION [None]
